FAERS Safety Report 21914835 (Version 1)
Quarter: 2023Q1

REPORT INFORMATION
  Report Type: Spontaneous
  Country: JP (occurrence: JP)
  Receive Date: 20230126
  Receipt Date: 20230126
  Transmission Date: 20230418
  Serious: Yes (Death, Hospitalization, Other)
  Sender: FDA-Public Use
  Company Number: JP-ASTELLAS-2022JP018050

PATIENT
  Age: 9 Decade
  Sex: Female

DRUGS (6)
  1. XOSPATA [Suspect]
     Active Substance: GILTERITINIB
     Indication: Acute myeloid leukaemia recurrent
     Route: 048
     Dates: start: 20221110, end: 20221116
  2. XOSPATA [Suspect]
     Active Substance: GILTERITINIB
     Indication: Acute myeloid leukaemia refractory
     Route: 048
     Dates: start: 20221205, end: 20221207
  3. VANCOMYCIN [Concomitant]
     Active Substance: VANCOMYCIN
     Indication: Sepsis
     Dosage: UNK UNK, UNKNOWN FREQ.
     Route: 065
  4. CEFEPIME HYDROCHLORIDE [Concomitant]
     Active Substance: CEFEPIME HYDROCHLORIDE
     Indication: Pathogen resistance
     Dosage: UNK UNK, UNKNOWN FREQ.
     Route: 065
     Dates: start: 202212
  5. AMIKACIN SULFATE [Concomitant]
     Active Substance: AMIKACIN SULFATE
     Indication: Pathogen resistance
     Dosage: UNK UNK, UNKNOWN FREQ.
     Route: 065
     Dates: start: 202212
  6. MEROPENEM [Concomitant]
     Active Substance: MEROPENEM
     Indication: Pathogen resistance
     Dosage: UNK UNK, UNKNOWN FREQ.
     Route: 065
     Dates: start: 20221209

REACTIONS (2)
  - Septic shock [Fatal]
  - Pathogen resistance [Recovered/Resolved]

NARRATIVE: CASE EVENT DATE: 20221207
